FAERS Safety Report 8599734-7 (Version None)
Quarter: 2012Q3

REPORT INFORMATION
  Report Type: 
  Country: None (occurrence: None)
  Receive Date: 20120816
  Receipt Date: 20120813
  Transmission Date: 20120928
  Serious: No
  Sender: FDA-Public Use
  Company Number: US-PFIZER INC-2012157057

PATIENT
  Age: 45 Year
  Sex: Male

DRUGS (2)
  1. GEODON [Suspect]
     Indication: BIPOLAR DISORDER
     Dosage: 20MG IN THE MORNING AND TWO CAPSULES OF 60MG AT NIGHT
     Route: 048
     Dates: start: 20110729, end: 20120501
  2. GEODON [Suspect]
     Dosage: 120MG ONCE AT NIGHT
     Route: 048
     Dates: start: 20120501

REACTIONS (7)
  - ASTHENIA [None]
  - ELECTROCARDIOGRAM ABNORMAL [None]
  - WEIGHT DECREASED [None]
  - MYALGIA [None]
  - PYREXIA [None]
  - ARRHYTHMIA [None]
  - TREMOR [None]
